FAERS Safety Report 19459558 (Version 1)
Quarter: 2021Q2

REPORT INFORMATION
  Report Type: Spontaneous
  Country: FR (occurrence: FR)
  Receive Date: 20210624
  Receipt Date: 20210624
  Transmission Date: 20210717
  Serious: Yes (Hospitalization)
  Sender: FDA-Public Use
  Company Number: FR-ASTRAZENECA-2021A534380

PATIENT
  Age: 40 Year
  Sex: Female
  Weight: 62 kg

DRUGS (15)
  1. PRISTINAMYCINE [Concomitant]
     Active Substance: PRISTINAMYCIN
  2. VENTOLINE [Concomitant]
     Active Substance: ALBUTEROL
  3. MIFLASONE [Concomitant]
     Active Substance: BECLOMETHASONE DIPROPIONATE
  4. PULMICORT TURBUHALER [Suspect]
     Active Substance: BUDESONIDE
     Indication: RESPIRATORY TRACT INFECTION
     Route: 055
     Dates: start: 20190511, end: 20190519
  5. UVEDOSE [Concomitant]
     Active Substance: CHOLECALCIFEROL
  6. COVERSYL [Concomitant]
     Active Substance: PERINDOPRIL
  7. CORTANCYL [Suspect]
     Active Substance: PREDNISONE
     Indication: RESPIRATORY TRACT INFECTION
     Route: 048
     Dates: start: 20190511, end: 20190519
  8. CRESTOR [Concomitant]
     Active Substance: ROSUVASTATIN CALCIUM
  9. HELICIDINE [Concomitant]
     Active Substance: ESCARGOT
  10. WYSTAMM [Concomitant]
     Active Substance: RUPATADINE FUMARATE
  11. ESOMEPRAZOLE. [Concomitant]
     Active Substance: ESOMEPRAZOLE MAGNESIUM
  12. FORMOTEROL (FUMARATE) DIHYDRATE [Concomitant]
  13. DYMISTA [Concomitant]
     Active Substance: AZELASTINE HYDROCHLORIDE\FLUTICASONE PROPIONATE
  14. APROVEL [Concomitant]
     Active Substance: IRBESARTAN
  15. SINGULAIR [Concomitant]
     Active Substance: MONTELUKAST SODIUM

REACTIONS (1)
  - Hyperglycaemia [Recovered/Resolved]

NARRATIVE: CASE EVENT DATE: 20190519
